FAERS Safety Report 25653661 (Version 2)
Quarter: 2025Q4

REPORT INFORMATION
  Report Type: Spontaneous
  Country: US (occurrence: US)
  Receive Date: 20250807
  Receipt Date: 20251122
  Transmission Date: 20260117
  Serious: No
  Sender: SUNOVION
  Company Number: US-SMPA-2025SPA009879

PATIENT
  Age: 74 Year
  Sex: Female

DRUGS (1)
  1. GEMTESA [Suspect]
     Active Substance: VIBEGRON
     Indication: Product used for unknown indication
     Dosage: UNK
     Route: 048

REACTIONS (9)
  - Headache [Unknown]
  - Nausea [Unknown]
  - Hypertonic bladder [Unknown]
  - Condition aggravated [Unknown]
  - Urinary incontinence [Unknown]
  - Pollakiuria [Unknown]
  - Rhinorrhoea [Unknown]
  - Nasal congestion [Unknown]
  - Abdominal pain upper [Unknown]
